FAERS Safety Report 4349529-5 (Version None)
Quarter: 2004Q2

REPORT INFORMATION
  Report Type: 
  Country: None (occurrence: None)
  Receive Date: 20040428
  Receipt Date: 20040414
  Transmission Date: 20050107
  Serious: Yes (Other)
  Sender: FDA-Public Use
  Company Number: PL-MERCK-0404POL00006

PATIENT
  Age: 2 Year
  Sex: Male
  Weight: 18 kg

DRUGS (2)
  1. SINGULAIR [Suspect]
     Indication: ASTHMA
     Route: 048
     Dates: start: 20040305, end: 20040309
  2. SINGULAIR [Suspect]
     Indication: DERMATITIS ATOPIC
     Route: 048
     Dates: start: 20040305, end: 20040309

REACTIONS (4)
  - COORDINATION ABNORMAL [None]
  - MEDICATION ERROR [None]
  - MUSCLE CONTRACTURE [None]
  - SOMNOLENCE [None]
